FAERS Safety Report 16932606 (Version 2)
Quarter: 2019Q4

REPORT INFORMATION
  Report Type: Report from Study
  Country: CA (occurrence: CA)
  Receive Date: 20191017
  Receipt Date: 20191108
  Transmission Date: 20200122
  Serious: Yes (Other)
  Sender: FDA-Public Use
  Company Number: CA-AMGEN-CANNI2019150694

PATIENT
  Age: 43 Year
  Sex: Female

DRUGS (2)
  1. AIMOVIG [Suspect]
     Active Substance: ERENUMAB-AOOE
     Dosage: 140 MG (140 X ONE PEN), QMO
     Route: 058
     Dates: start: 20190807
  2. AIMOVIG [Suspect]
     Active Substance: ERENUMAB-AOOE
     Indication: MIGRAINE
     Dosage: 140 MILLIGRAM, (70 MG X 2) QMO
     Route: 058
     Dates: start: 20190104

REACTIONS (3)
  - Migraine [Not Recovered/Not Resolved]
  - Headache [Unknown]
  - Hypersensitivity [Recovering/Resolving]
